FAERS Safety Report 7441444-3 (Version None)
Quarter: 2011Q2

REPORT INFORMATION
  Report Type: 
  Country: None (occurrence: None)
  Receive Date: 20110428
  Receipt Date: 20110421
  Transmission Date: 20111010
  Serious: Yes (Other)
  Sender: FDA-Public Use
  Company Number: US-JNJFOC-20110311977

PATIENT
  Age: 5 Decade
  Sex: Female

DRUGS (5)
  1. NUCYNTA [Suspect]
     Indication: PRODUCT USED FOR UNKNOWN INDICATION
     Dosage: Q/D
     Route: 048
  2. LYRICA [Concomitant]
     Route: 065
  3. METHADONE [Concomitant]
     Route: 065
  4. UNKNOWN MEDICATION [Concomitant]
     Route: 065
  5. OXYCODONE HCL [Concomitant]
     Route: 065

REACTIONS (3)
  - AMNESIA [None]
  - SOMNAMBULISM [None]
  - PSYCHOTIC BEHAVIOUR [None]
